FAERS Safety Report 5366628-X (Version None)
Quarter: 2007Q2

REPORT INFORMATION
  Report Type: 
  Country: None (occurrence: None)
  Receive Date: 20070619
  Receipt Date: 20070618
  Transmission Date: 20071010
  Serious: No
  Sender: FDA-Public Use
  Company Number: 2007S1002908

PATIENT
  Age: 64 Year
  Sex: Female
  Weight: 87.5442 kg

DRUGS (1)
  1. FENTANYL TRANSDERMAL SYSTEM [Suspect]
     Indication: INTERVERTEBRAL DISC DEGENERATION
     Dosage: 100 UG/HR; EVERY 3 DAYS; TRANSDERMAL
     Route: 062
     Dates: start: 20050401

REACTIONS (6)
  - ABASIA [None]
  - ANXIETY [None]
  - DRUG WITHDRAWAL SYNDROME [None]
  - PANIC ATTACK [None]
  - PHARMACEUTICAL PRODUCT COMPLAINT [None]
  - TREMOR [None]
